FAERS Safety Report 13450427 (Version 2)
Quarter: 2017Q2

REPORT INFORMATION
  Report Type: Spontaneous
  Country: FR (occurrence: FR)
  Receive Date: 20170418
  Receipt Date: 20170420
  Transmission Date: 20170830
  Serious: Yes (Life-Threatening, Hospitalization, Disabling)
  Sender: FDA-Public Use
  Company Number: FR-BAXTER-2017BAX015882

PATIENT
  Age: 67 Year
  Sex: Male

DRUGS (41)
  1. MABTHERA [Suspect]
     Active Substance: RITUXIMAB
     Dosage: FIFTH COURSE OF R-CHOP PROTOCOL
     Route: 058
     Dates: start: 20160719, end: 20160719
  2. CORTANCYL [Suspect]
     Active Substance: PREDNISONE
     Indication: B-CELL LYMPHOMA
     Dosage: FIRST COURSE OF R-CHOP PROTOCOL
     Route: 048
     Dates: start: 20160425, end: 20160425
  3. DOXORUBICIN TEVA [Suspect]
     Active Substance: DOXORUBICIN
     Indication: METASTASES TO BONE
     Dosage: SECOND COURSE OF R-CHOP PROTOCOL
     Route: 042
     Dates: start: 20160517, end: 20160517
  4. VINCRISTIN [Suspect]
     Active Substance: VINCRISTINE
     Indication: B-CELL LYMPHOMA
     Dosage: FIRST COURSE OF R-CHOP PROTOCOL
     Route: 042
     Dates: start: 20160425, end: 20160425
  5. CORTANCYL [Suspect]
     Active Substance: PREDNISONE
     Indication: METASTASES TO BONE
     Dosage: SECOND COURSE OF R-CHOP PROTOCOL
     Route: 048
     Dates: start: 20160517, end: 20160517
  6. CORTANCYL [Suspect]
     Active Substance: PREDNISONE
     Dosage: SIXTH COURSE OF R-CHOP PROTOCOL
     Route: 048
     Dates: start: 20160809, end: 20160809
  7. DOLIPRANE [Concomitant]
     Active Substance: ACETAMINOPHEN
     Indication: PREMEDICATION
     Route: 065
  8. UROMITEXAN TABLETTEN 600 MG [Suspect]
     Active Substance: MESNA
     Indication: PREMEDICATION
     Route: 048
  9. MABTHERA [Suspect]
     Active Substance: RITUXIMAB
     Indication: B-CELL LYMPHOMA
     Dosage: FIRST COURSE OF R-CHOP PROTOCOL
     Route: 042
     Dates: start: 20160425, end: 20160425
  10. MABTHERA [Suspect]
     Active Substance: RITUXIMAB
     Indication: METASTASES TO BONE
     Dosage: SECOND COURSE OF R-CHOP PROTOCOL
     Route: 058
     Dates: start: 20160517, end: 20160517
  11. DOXORUBICIN TEVA [Suspect]
     Active Substance: DOXORUBICIN
     Dosage: FOURTH COURSE OF R-CHOP PROTOCOL
     Route: 042
     Dates: start: 20160628, end: 20160628
  12. DOXORUBICIN TEVA [Suspect]
     Active Substance: DOXORUBICIN
     Dosage: FIFTH COURSE OF R-CHOP PROTOCOL
     Route: 042
     Dates: start: 20160719, end: 20160719
  13. VINCRISTIN [Suspect]
     Active Substance: VINCRISTINE
     Dosage: FIFTH COURSE OF R-CHOP PROTOCOL
     Route: 042
     Dates: start: 20160719, end: 20160719
  14. POLARAMINE [Concomitant]
     Active Substance: DEXCHLORPHENIRAMINE MALEATE
     Indication: PREMEDICATION
     Route: 042
  15. MABTHERA [Suspect]
     Active Substance: RITUXIMAB
     Dosage: MAINTENANCE CHEMOTHERAPY
     Route: 058
     Dates: start: 20170127, end: 20170127
  16. MABTHERA [Suspect]
     Active Substance: RITUXIMAB
     Dosage: MAINTENANCE CHEMOTHERAPY
     Route: 058
     Dates: start: 20170324, end: 20170324
  17. VINCRISTIN [Suspect]
     Active Substance: VINCRISTINE
     Indication: METASTASES TO BONE
     Dosage: SECOND COURSE OF R-CHOP PROTOCOL
     Route: 042
     Dates: start: 20160517, end: 20160517
  18. VINCRISTIN [Suspect]
     Active Substance: VINCRISTINE
     Dosage: SIXTH COURSE OF R-CHOP PROTOCOL
     Route: 042
     Dates: start: 20160809, end: 20160809
  19. CORTANCYL [Suspect]
     Active Substance: PREDNISONE
     Dosage: FOURTH COURSE OF R-CHOP PROTOCOL
     Route: 048
     Dates: start: 20160628, end: 20160628
  20. ENDOXAN 1000 MG, POUDRE POUR SOLUTION INJECTABLE [Suspect]
     Active Substance: CYCLOPHOSPHAMIDE
     Indication: B-CELL LYMPHOMA
     Dosage: FIRST COURSE OF R-CHOP PROTOCOL
     Route: 042
     Dates: start: 20160425, end: 20160425
  21. ENDOXAN 1000 MG, POUDRE POUR SOLUTION INJECTABLE [Suspect]
     Active Substance: CYCLOPHOSPHAMIDE
     Dosage: THIRD COURSE OF R-CHOP PROTOCOL
     Route: 042
     Dates: start: 20160607, end: 20160607
  22. ENDOXAN 1000 MG, POUDRE POUR SOLUTION INJECTABLE [Suspect]
     Active Substance: CYCLOPHOSPHAMIDE
     Dosage: FIFTH COURSE OF R-CHOP PROTOCOL
     Route: 042
     Dates: start: 20160719, end: 20160719
  23. MABTHERA [Suspect]
     Active Substance: RITUXIMAB
     Dosage: SIXTH COURSE OF R-CHOP PROTOCOL
     Route: 058
     Dates: start: 20160809, end: 20160809
  24. MABTHERA [Suspect]
     Active Substance: RITUXIMAB
     Dosage: FIRST COURSE OF RITUXIMAB ALONE
     Route: 058
     Dates: start: 20160905, end: 20160905
  25. VINCRISTIN [Suspect]
     Active Substance: VINCRISTINE
     Dosage: FOURTH COURSE OF R-CHOP PROTOCOL
     Route: 042
     Dates: start: 20160628, end: 20160628
  26. CORTANCYL [Suspect]
     Active Substance: PREDNISONE
     Dosage: THIRD COURSE OF R-CHOP PROTOCOL
     Route: 048
     Dates: start: 20160607, end: 20160607
  27. MABTHERA [Suspect]
     Active Substance: RITUXIMAB
     Dosage: THIRD COURSE OF R-CHOP PROTOCOL
     Route: 058
     Dates: start: 20160607, end: 20160607
  28. MABTHERA [Suspect]
     Active Substance: RITUXIMAB
     Dosage: FOURTH COURSE OF R-CHOP PROTOCOL
     Route: 058
     Dates: start: 20160628, end: 20160628
  29. MABTHERA [Suspect]
     Active Substance: RITUXIMAB
     Dosage: MAINTENANCE CHEMOTHERAPY
     Route: 058
     Dates: start: 20161202, end: 20161202
  30. DOXORUBICIN TEVA [Suspect]
     Active Substance: DOXORUBICIN
     Dosage: THIRD COURSE OF R-CHOP PROTOCOL
     Route: 042
     Dates: start: 20160607, end: 20160607
  31. VINCRISTIN [Suspect]
     Active Substance: VINCRISTINE
     Dosage: THIRD COURSE OF R-CHOP PROTOCOL
     Route: 042
     Dates: start: 20160607, end: 20160607
  32. ONDANSETRON ACCORD [Concomitant]
     Active Substance: ONDANSETRON
     Indication: PREMEDICATION
     Route: 042
  33. MABTHERA [Suspect]
     Active Substance: RITUXIMAB
     Dosage: SECOND COURSE OF RITUXIMAB ALONE
     Route: 058
     Dates: start: 20160920, end: 20160920
  34. MESNA EG [Concomitant]
     Active Substance: MESNA
     Indication: PREMEDICATION
     Route: 042
  35. ENDOXAN 1000 MG, POUDRE POUR SOLUTION INJECTABLE [Suspect]
     Active Substance: CYCLOPHOSPHAMIDE
     Indication: METASTASES TO BONE
     Dosage: SECOND COURSE OF R-CHOP PROTOCOL
     Route: 042
     Dates: start: 20160517, end: 20160517
  36. ENDOXAN 1000 MG, POUDRE POUR SOLUTION INJECTABLE [Suspect]
     Active Substance: CYCLOPHOSPHAMIDE
     Dosage: FOURTH COURSE OF R-CHOP PROTOCOL
     Route: 042
     Dates: start: 20160628, end: 20160628
  37. ENDOXAN 1000 MG, POUDRE POUR SOLUTION INJECTABLE [Suspect]
     Active Substance: CYCLOPHOSPHAMIDE
     Dosage: SIXTH COURSE OF R-CHOP PROTOCOL
     Route: 042
     Dates: start: 20160809, end: 20160809
  38. DOXORUBICIN TEVA [Suspect]
     Active Substance: DOXORUBICIN
     Indication: B-CELL LYMPHOMA
     Dosage: FIRST COURSE OF R-CHOP PROTOCOL
     Route: 042
     Dates: start: 20160425, end: 20160425
  39. DOXORUBICIN TEVA [Suspect]
     Active Substance: DOXORUBICIN
     Dosage: SIXTH COURSE OF R-CHOP PROTOCOL
     Route: 042
     Dates: start: 20160809, end: 20160809
  40. CORTANCYL [Suspect]
     Active Substance: PREDNISONE
     Dosage: FIFTH COURSE OF R-CHOP PROTOCOL
     Route: 048
     Dates: start: 20160719, end: 20160719
  41. METHYLPREDNISOLONE. [Concomitant]
     Active Substance: METHYLPREDNISOLONE
     Indication: PREMEDICATION
     Route: 042

REACTIONS (5)
  - Pulmonary hypertension [Recovered/Resolved]
  - Ejection fraction decreased [Recovering/Resolving]
  - Cardiac failure [Recovering/Resolving]
  - Mitral valve incompetence [Recovering/Resolving]
  - Tachyarrhythmia [Recovered/Resolved]

NARRATIVE: CASE EVENT DATE: 20161122
